FAERS Safety Report 9313390 (Version 1)
Quarter: 2013Q2

REPORT INFORMATION
  Report Type: Spontaneous
  Country: US (occurrence: US)
  Receive Date: 20130528
  Receipt Date: 20130528
  Transmission Date: 20140414
  Serious: Yes (Hospitalization)
  Sender: FDA-Public Use
  Company Number: US-ELI_LILLY_AND_COMPANY-US201305006733

PATIENT
  Age: 66 Year
  Sex: Female
  Weight: 79.82 kg

DRUGS (1)
  1. HUMULIN REGULAR [Suspect]
     Dosage: UNK
     Route: 058

REACTIONS (3)
  - Blood glucose increased [Unknown]
  - Blood glucose increased [Unknown]
  - Wrong technique in drug usage process [Unknown]
